FAERS Safety Report 6331572-8 (Version None)
Quarter: 2009Q3

REPORT INFORMATION
  Report Type: 
  Country: None (occurrence: None)
  Receive Date: 20090827
  Receipt Date: 20090824
  Transmission Date: 20100115
  Serious: Yes (Hospitalization)
  Sender: FDA-Public Use
  Company Number: US-JNJFOC-20090807788

PATIENT
  Age: 2 Year
  Sex: Male
  Weight: 14.52 kg

DRUGS (2)
  1. MS PEPCID AC EZ CHEWS BERRIES AND CREAM [Suspect]
     Route: 048
  2. MS PEPCID AC EZ CHEWS BERRIES AND CREAM [Suspect]
     Indication: ACCIDENTAL EXPOSURE
     Route: 048

REACTIONS (4)
  - ACCIDENTAL DRUG INTAKE BY CHILD [None]
  - ACCIDENTAL OVERDOSE [None]
  - ARRHYTHMIA [None]
  - PRODUCT QUALITY ISSUE [None]
